FAERS Safety Report 9022114 (Version 1)
Quarter: 2013Q1

REPORT INFORMATION
  Report Type: Spontaneous
  Country: US (occurrence: US)
  Receive Date: 20130118
  Receipt Date: 20130118
  Transmission Date: 20140127
  Serious: Yes (Disabling, Other)
  Sender: FDA-Public Use
  Company Number: US-INCYTE CORPORATION-2012IN002117

PATIENT
  Age: 85 None
  Sex: Female
  Weight: 67.12 kg

DRUGS (4)
  1. JAKAFI [Suspect]
     Indication: MYELOFIBROSIS
     Dosage: 20 MG, BID
     Route: 048
     Dates: start: 20121018, end: 20130110
  2. METOPROLOL [Concomitant]
  3. ASA [Concomitant]
  4. LOSARTAN [Concomitant]

REACTIONS (1)
  - Diarrhoea [Recovered/Resolved]
